FAERS Safety Report 5527969-6 (Version None)
Quarter: 2007Q4

REPORT INFORMATION
  Report Type: 
  Country: None (occurrence: None)
  Receive Date: 20071123
  Receipt Date: 20071112
  Transmission Date: 20080405
  Serious: Yes (Other)
  Sender: FDA-Public Use
  Company Number: 07112321

PATIENT
  Age: 80 Year
  Sex: Male

DRUGS (1)
  1. PHENYTOIN SODIUM [Suspect]
     Indication: CONVULSION
     Dosage: 300MG, QD, ORAL
     Route: 048

REACTIONS (3)
  - CONDITION AGGRAVATED [None]
  - CONVULSION [None]
  - DRUG LEVEL BELOW THERAPEUTIC [None]
